FAERS Safety Report 10912385 (Version 2)
Quarter: 2015Q1

REPORT INFORMATION
  Report Type: Spontaneous
  Country: SA (occurrence: SA)
  Receive Date: 20150313
  Receipt Date: 20150327
  Transmission Date: 20150721
  Serious: Yes (Other)
  Sender: FDA-Public Use
  Company Number: SA-JNJFOC-20150305791

PATIENT
  Age: 44 Year
  Sex: Female

DRUGS (4)
  1. TEGRETOL [Suspect]
     Active Substance: CARBAMAZEPINE
     Indication: MYOCLONIC EPILEPSY
     Route: 065
  2. TOPAMAX [Suspect]
     Active Substance: TOPIRAMATE
     Indication: MYOCLONIC EPILEPSY
     Route: 048
     Dates: start: 2013
  3. TEGRETOL [Suspect]
     Active Substance: CARBAMAZEPINE
     Indication: MIGRAINE PROPHYLAXIS
     Route: 065
  4. TOPAMAX [Suspect]
     Active Substance: TOPIRAMATE
     Indication: MIGRAINE PROPHYLAXIS
     Route: 048
     Dates: start: 2013

REACTIONS (1)
  - Cataract [Not Recovered/Not Resolved]

NARRATIVE: CASE EVENT DATE: 2014
